FAERS Safety Report 4346384-4 (Version None)
Quarter: 2004Q2

REPORT INFORMATION
  Report Type: 
  Country: None (occurrence: None)
  Receive Date: 20040426
  Receipt Date: 20030618
  Transmission Date: 20050107
  Serious: No
  Sender: FDA-Public Use
  Company Number: US-GLAXOSMITHKLINE-A0412964A

PATIENT
  Sex: Female

DRUGS (6)
  1. ZOFRAN [Suspect]
     Indication: NAUSEA
     Dosage: 4MG FOUR TIMES PER DAY
     Route: 048
     Dates: start: 20030602
  2. METOCLOPRAMIDE [Concomitant]
  3. DICYCLOMINE [Concomitant]
  4. PROMETHAZINE [Concomitant]
  5. CHLORDIAZEPOXIDE + CLIDINIUM BROMIDE [Concomitant]
  6. LEVSIN PB [Concomitant]

REACTIONS (1)
  - MENSTRUATION IRREGULAR [None]
